FAERS Safety Report 23058708 (Version 1)
Quarter: 2023Q4

REPORT INFORMATION
  Report Type: Spontaneous
  Country: US (occurrence: US)
  Receive Date: 20231012
  Receipt Date: 20231012
  Transmission Date: 20240110
  Serious: Yes (Other)
  Sender: FDA-Public Use
  Company Number: US-Shilpa Medicare Limited-SML-US-2023-01400

PATIENT
  Age: 21 Month

DRUGS (1)
  1. CAPECITABINE [Suspect]
     Active Substance: CAPECITABINE
     Indication: Product used for unknown indication
     Dosage: INGESTED UP TO 15 CAPECITABINE 500 MG TABLETS, DOSES RANGED FROM 500 - 7500 MG FOR CAPECITABINE
     Route: 048

REACTIONS (3)
  - Medication error [Unknown]
  - Accidental overdose [Unknown]
  - Accidental exposure to product by child [Unknown]
